FAERS Safety Report 5006216-8 (Version None)
Quarter: 2006Q1

REPORT INFORMATION
  Report Type: 
  Country: None (occurrence: None)
  Receive Date: 20060327
  Receipt Date: 20060207
  Transmission Date: 20060701
  Serious: No
  Sender: FDA-Public Use
  Company Number: 221609

PATIENT
  Age: 52 Year
  Sex: Female

DRUGS (1)
  1. AVASTIN [Suspect]
     Indication: COLORECTAL CANCER
     Dosage: 480 MG
     Dates: start: 20051031

REACTIONS (1)
  - MEDICATION ERROR [None]
